FAERS Safety Report 5546359-3 (Version None)
Quarter: 2007Q4

REPORT INFORMATION
  Report Type: 
  Country: None (occurrence: None)
  Receive Date: 20071206
  Receipt Date: 20071206
  Transmission Date: 20080405
  Serious: Yes (Other)
  Sender: FDA-Public Use
  Company Number: None

PATIENT
  Age: 28 Year
  Sex: Female
  Weight: 58.9676 kg

DRUGS (1)
  1. NICODERM CQ [Suspect]
     Indication: SMOKING CESSATION THERAPY
     Dosage: 1 24 HR TRANSDERMAL
     Route: 062
     Dates: start: 20070910, end: 20071205

REACTIONS (6)
  - APPLICATION SITE PRURITUS [None]
  - CHOKING [None]
  - DYSPNOEA [None]
  - FEAR [None]
  - LARYNGOSPASM [None]
  - PAIN IN EXTREMITY [None]
